FAERS Safety Report 20993927 (Version 1)
Quarter: 2022Q2

REPORT INFORMATION
  Report Type: Spontaneous
  Country: US (occurrence: US)
  Receive Date: 20220622
  Receipt Date: 20220622
  Transmission Date: 20220721
  Serious: No
  Sender: FDA-Public Use
  Company Number: US-CTI BIOPHARMA-2022US02812

PATIENT
  Age: 78 Year
  Sex: Male

DRUGS (1)
  1. VONJO [Suspect]
     Active Substance: PACRITINIB
     Indication: Myelofibrosis
     Dosage: 100 MILLIGRAM, BID
     Dates: start: 20220328

REACTIONS (3)
  - Diarrhoea [Unknown]
  - Haemoglobin decreased [Unknown]
  - Platelet count decreased [Unknown]
